FAERS Safety Report 10091439 (Version 1)
Quarter: 2014Q2

REPORT INFORMATION
  Report Type: Spontaneous
  Country: US (occurrence: US)
  Receive Date: 20140421
  Receipt Date: 20140421
  Transmission Date: 20141212
  Serious: No
  Sender: FDA-Public Use
  Company Number: US-GILEAD-2012-0065869

PATIENT
  Sex: Female

DRUGS (2)
  1. LETAIRIS [Suspect]
     Indication: COR PULMONALE CHRONIC
     Dosage: 5 MG, QD
     Route: 048
     Dates: start: 20121010
  2. REVATIO [Concomitant]

REACTIONS (4)
  - Feeling cold [Unknown]
  - Dysphagia [Unknown]
  - Nausea [Unknown]
  - Fatigue [Unknown]
